FAERS Safety Report 7601213-8 (Version None)
Quarter: 2011Q3

REPORT INFORMATION
  Report Type: 
  Country: None (occurrence: None)
  Receive Date: 20110711
  Receipt Date: 20110701
  Transmission Date: 20111222
  Serious: Yes (Other)
  Sender: FDA-Public Use
  Company Number: IT-GLAXOSMITHKLINE-B0731776A

PATIENT

DRUGS (2)
  1. LAPATINIB [Suspect]
     Indication: BREAST CANCER METASTATIC
     Dosage: 1250MG PER DAY
     Route: 065
     Dates: start: 20101216, end: 20110214
  2. CAPECITABINE [Concomitant]
     Dosage: 2000MG PER DAY
     Route: 048
     Dates: start: 20101216, end: 20110118

REACTIONS (4)
  - HYPERBILIRUBINAEMIA [None]
  - DERMATITIS [None]
  - DIARRHOEA [None]
  - RASH MACULO-PAPULAR [None]
